FAERS Safety Report 16098216 (Version 7)
Quarter: 2019Q3

REPORT INFORMATION
  Report Type: Report from Study
  Country: CA (occurrence: CA)
  Receive Date: 20190321
  Receipt Date: 20190927
  Transmission Date: 20191004
  Serious: Yes (Hospitalization, Disabling, Other)
  Sender: FDA-Public Use
  Company Number: CA-BRISTOL-MYERS SQUIBB COMPANY-BMS-2019-000074

PATIENT
  Age: 66 Year
  Sex: Male

DRUGS (2)
  1. NIVOLUMAB [Suspect]
     Active Substance: NIVOLUMAB
     Indication: MALIGNANT MELANOMA
     Dosage: 240 MG, Q2WK
     Route: 042
     Dates: start: 20181213
  2. NIVOLUMAB [Suspect]
     Active Substance: NIVOLUMAB
     Indication: PRODUCT USED FOR UNKNOWN INDICATION
     Dosage: 480 MILLIGRAM, QMO
     Route: 042
     Dates: start: 20181213

REACTIONS (16)
  - Depression [Unknown]
  - Tremor [Unknown]
  - Pain [Unknown]
  - Dyspnoea [Unknown]
  - Hypertension [Recovered/Resolved]
  - Nausea [Unknown]
  - Anxiety [Unknown]
  - Fatigue [Recovered/Resolved]
  - Somnolence [Unknown]
  - Decreased appetite [Unknown]
  - Malaise [Unknown]
  - Bedridden [Unknown]
  - Asthma [Unknown]
  - Alcohol withdrawal syndrome [Unknown]
  - Ankle fracture [Unknown]
  - Influenza [Recovered/Resolved]

NARRATIVE: CASE EVENT DATE: 20181214
